FAERS Safety Report 7767959-6 (Version None)
Quarter: 2011Q3

REPORT INFORMATION
  Report Type: 
  Country: None (occurrence: None)
  Receive Date: 20110922
  Receipt Date: 20110615
  Transmission Date: 20111222
  Serious: Yes (Hospitalization, Other)
  Sender: FDA-Public Use
  Company Number: US-ASTRAZENECA-2009UW03121

PATIENT
  Age: 14284 Day
  Sex: Female

DRUGS (11)
  1. PAXIL [Concomitant]
     Dates: start: 20031001
  2. ATIVAN [Concomitant]
     Dates: start: 20031010, end: 20031017
  3. LITHIUM CARBONATE [Concomitant]
     Dates: start: 20031001
  4. SEROQUEL [Suspect]
     Indication: BIPOLAR I DISORDER
     Route: 048
     Dates: start: 20030101
  5. SEROQUEL [Suspect]
     Route: 048
     Dates: start: 20060601
  6. PREVACID [Concomitant]
     Indication: GASTROOESOPHAGEAL REFLUX DISEASE
     Dates: start: 20031001
  7. SEROQUEL [Suspect]
     Dosage: 200 MG, 200 MG AFTERNOON AND 400 MG AT HS
     Route: 048
     Dates: start: 20071207
  8. BENICAR [Concomitant]
     Indication: HYPERTENSION
     Dates: start: 20060601
  9. BENICAR [Concomitant]
     Route: 048
     Dates: start: 20071201
  10. PAXIL [Concomitant]
     Dates: start: 20060601
  11. ATIVAN [Concomitant]
     Route: 048
     Dates: start: 20060601

REACTIONS (4)
  - PANCREATITIS [None]
  - KETOACIDOSIS [None]
  - DIABETES MELLITUS [None]
  - HYPERGLYCAEMIA [None]
